FAERS Safety Report 9383574 (Version 1)
Quarter: 2013Q3

REPORT INFORMATION
  Report Type: Spontaneous
  Country: US (occurrence: US)
  Receive Date: 20130704
  Receipt Date: 20130704
  Transmission Date: 20140515
  Serious: No
  Sender: FDA-Public Use
  Company Number: US-PFIZER INC-2013194365

PATIENT
  Age: 71 Year
  Sex: Female
  Weight: 78.9 kg

DRUGS (1)
  1. AROMASIN [Suspect]
     Indication: BREAST CANCER
     Dosage: 25 MG, 1X/DAY
     Dates: start: 201301, end: 2013

REACTIONS (5)
  - Swelling [Recovered/Resolved]
  - Malaise [Recovered/Resolved]
  - Emotional disorder [Recovered/Resolved]
  - Mineral metabolism disorder [Recovered/Resolved]
  - Personality disorder [Recovered/Resolved]
